FAERS Safety Report 5813779-9 (Version None)
Quarter: 2008Q3

REPORT INFORMATION
  Report Type: 
  Country: None (occurrence: None)
  Receive Date: 20080717
  Receipt Date: 20080709
  Transmission Date: 20090109
  Serious: Yes (Other)
  Sender: FDA-Public Use
  Company Number: PHHY2008CA13072

PATIENT
  Sex: Female

DRUGS (6)
  1. EXELON [Suspect]
     Indication: DEMENTIA
     Route: 062
  2. NORVASC [Concomitant]
     Dosage: 5 MG
  3. TENORMIN [Concomitant]
     Dosage: 1.5 TABLETS, QD
  4. CRESTOR [Concomitant]
     Dosage: 5 MG
  5. MACROBID [Concomitant]
     Dosage: 100 MG, PRN
  6. FOSAMAX [Concomitant]
     Dosage: 70 MG, UNK

REACTIONS (7)
  - ALANINE AMINOTRANSFERASE INCREASED [None]
  - ASPARTATE AMINOTRANSFERASE INCREASED [None]
  - AUTOIMMUNE HEPATITIS [None]
  - BLOOD ALKALINE PHOSPHATASE INCREASED [None]
  - BLOOD IMMUNOGLOBULIN A INCREASED [None]
  - HEPATIC ENZYME INCREASED [None]
  - SMOOTH MUSCLE ANTIBODY [None]
